FAERS Safety Report 19390468 (Version 2)
Quarter: 2021Q2

REPORT INFORMATION
  Report Type: Spontaneous
  Country: IN (occurrence: IN)
  Receive Date: 20210608
  Receipt Date: 20210621
  Transmission Date: 20210717
  Serious: Yes (Hospitalization, Other)
  Sender: FDA-Public Use
  Company Number: IN-35507-2021-08777

PATIENT
  Age: 3 Year
  Sex: Female
  Weight: 14 kg

DRUGS (5)
  1. EPILIVE SYRUP 100 MG/ML [Suspect]
     Active Substance: LEVETIRACETAM
     Dosage: 3.5 MILLILITER, BID
     Route: 048
     Dates: start: 2021
  2. ARIP MT [Concomitant]
     Indication: INSOMNIA
     Dosage: 3 DOSAGE FORM, QD (1 TABLET IN MORNING AND 2 TABLETS AT NIGHT)
     Route: 065
  3. SIZODON [Concomitant]
     Indication: INSOMNIA
     Dosage: 1 DOSAGE FORM, QD AT NIGHT
     Route: 065
  4. EPILIVE SYRUP 100 MG/ML [Suspect]
     Active Substance: LEVETIRACETAM
     Indication: EPILEPSY
     Dosage: 1 MILLILITER, BID
     Route: 048
     Dates: start: 202102
  5. ARIP MT [Concomitant]
     Indication: DYSARTHRIA

REACTIONS (5)
  - Seizure [Not Recovered/Not Resolved]
  - Insomnia [Not Recovered/Not Resolved]
  - Abdominal discomfort [Not Recovered/Not Resolved]
  - Hyperchlorhydria [Not Recovered/Not Resolved]
  - Product dose omission issue [Unknown]
